FAERS Safety Report 12076268 (Version 1)
Quarter: 2016Q1

REPORT INFORMATION
  Report Type: Spontaneous
  Country: US (occurrence: US)
  Receive Date: 20160215
  Receipt Date: 20160215
  Transmission Date: 20160526
  Serious: No
  Sender: FDA-Public Use
  Company Number: US-ASTRAZENECA-2016SE12514

PATIENT
  Age: 862 Month
  Sex: Female

DRUGS (10)
  1. METOPROLOL. [Suspect]
     Active Substance: METOPROLOL
     Route: 048
     Dates: start: 200604
  2. VITAMIN D3 [Concomitant]
     Active Substance: CHOLECALCIFEROL
     Dosage: 2000 - 3000 IU
  3. OMEPRAZOLE. [Suspect]
     Active Substance: OMEPRAZOLE
     Route: 048
     Dates: start: 2003
  4. INOSITOL HEXANICOTINATE [Suspect]
     Active Substance: INOSITOL NIACINATE
     Route: 065
  5. CRESTOR [Suspect]
     Active Substance: ROSUVASTATIN CALCIUM
     Route: 048
     Dates: start: 200604, end: 201407
  6. ASPIRIN. [Concomitant]
     Active Substance: ASPIRIN
  7. CALCIUM GLUCONATE. [Concomitant]
     Active Substance: CALCIUM GLUCONATE
     Dates: start: 1995, end: 1998
  8. SERTRALINE [Concomitant]
     Active Substance: SERTRALINE HYDROCHLORIDE
  9. ATORVASTATIN CALCIUM. [Suspect]
     Active Substance: ATORVASTATIN CALCIUM
     Indication: BLOOD CHOLESTEROL DECREASED
     Route: 048
     Dates: start: 201407
  10. NIACIN. [Suspect]
     Active Substance: NIACIN
     Indication: BLOOD CHOLESTEROL DECREASED
     Dosage: 500 MG, 4 TO 5 TIMES WEEKLY
     Route: 048
     Dates: start: 201402

REACTIONS (2)
  - Vitamin D decreased [Recovered/Resolved]
  - Hepatic enzyme increased [Not Recovered/Not Resolved]

NARRATIVE: CASE EVENT DATE: 201405
